FAERS Safety Report 4370908-4 (Version None)
Quarter: 2004Q2

REPORT INFORMATION
  Report Type: 
  Country: None (occurrence: None)
  Receive Date: 20040601
  Receipt Date: 20040518
  Transmission Date: 20050107
  Serious: Yes (Hospitalization)
  Sender: FDA-Public Use
  Company Number: FR-2004-025821

PATIENT
  Age: 67 Year
  Sex: Female

DRUGS (6)
  1. SOTALOL HCL [Suspect]
     Dosage: 40 MG, 1X/DAY, ORAL
     Route: 048
  2. REMICADE [Suspect]
     Indication: RHEUMATOID ARTHRITIS
     Dosage: INTRAVENOUS
     Dates: start: 20001010, end: 20031022
  3. DI-ANTAL (PARACETAMOL, DEXTROPROPOXYPHENE HYDROCHLORIDE) TABLET [Suspect]
     Dosage: ORAL
     Route: 048
  4. DIAMICRON (GLICLAZIDE) [Suspect]
     Dosage: 3 TAB(S), 1X/DAY
  5. INDOMETHACIN [Suspect]
     Dosage: 2 TAB(S), 1X/DAY, ORAL
     Route: 048
  6. HYPERIUM (RILMENIDINE) [Suspect]
     Dosage: 2 TAB (S), 1X/DAY, ORAL
     Route: 048

REACTIONS (1)
  - RECTAL CANCER [None]
